FAERS Safety Report 10289399 (Version 1)
Quarter: 2014Q3

REPORT INFORMATION
  Report Type: Spontaneous
  Country: US (occurrence: US)
  Receive Date: 20140710
  Receipt Date: 20140710
  Transmission Date: 20150326
  Serious: Yes (Hospitalization)
  Sender: FDA-Public Use
  Company Number: US-ACCORD-024603

PATIENT
  Age: 56 Year
  Sex: Male

DRUGS (1)
  1. GEMCITABINE/GEMCITABINE HYDROCHLORIDE [Suspect]
     Active Substance: GEMCITABINE\GEMCITABINE HYDROCHLORIDE
     Indication: ADENOCARCINOMA PANCREAS
     Dosage: (1000MG/M2 IV ON DAYS 1, 8, 15 ON A 28-DAY CYCLE FOR SIX CYCLES
     Route: 042

REACTIONS (2)
  - Cardiac failure congestive [Recovering/Resolving]
  - Cardiomyopathy [Recovering/Resolving]
